FAERS Safety Report 5683101-X (Version None)
Quarter: 2008Q1

REPORT INFORMATION
  Report Type: 
  Country: None (occurrence: None)
  Receive Date: 20080327
  Receipt Date: 20080317
  Transmission Date: 20080703
  Serious: Yes (Other)
  Sender: FDA-Public Use
  Company Number: PHBS2008FR02949

PATIENT
  Age: 77 Year

DRUGS (1)
  1. PAMIDRONATE DISODIUM [Suspect]
     Indication: OSTEITIS DEFORMANS
     Dosage: 60 MG/D FOR 3 CONSECUTIVE DAYS EVERY 6 MONTH

REACTIONS (5)
  - BONE SARCOMA [None]
  - EPIDURITIS [None]
  - INFLAMMATORY PAIN [None]
  - SPINAL CORD NEOPLASM [None]
  - SPINAL DISORDER [None]
